FAERS Safety Report 9260380 (Version 2)
Quarter: 2013Q3

REPORT INFORMATION
  Report Type: Spontaneous
  Country: US (occurrence: US)
  Receive Date: 20130429
  Receipt Date: 20130710
  Transmission Date: 20140515
  Serious: No
  Sender: FDA-Public Use
  Company Number: PHEH2013US009298

PATIENT
  Age: 44 Year
  Sex: Female

DRUGS (1)
  1. GILENYA [Suspect]
     Dosage: 0.5 MG, UNK
     Route: 048
     Dates: start: 20121101

REACTIONS (1)
  - Hallucination [Recovered/Resolved]
